FAERS Safety Report 6379640-9 (Version None)
Quarter: 2009Q3

REPORT INFORMATION
  Report Type: 
  Country: None (occurrence: None)
  Receive Date: 20090924
  Receipt Date: 20090924
  Transmission Date: 20100115
  Serious: No
  Sender: FDA-Public Use
  Company Number: None

PATIENT
  Age: 44 Year
  Sex: Female
  Weight: 113.3993 kg

DRUGS (2)
  1. ABILIFY [Suspect]
     Indication: DEPRESSION
     Dosage: 5MB TWICE A DAY PO
     Route: 048
     Dates: start: 20090810, end: 20090902
  2. ABILIFY [Suspect]
     Indication: PAIN MANAGEMENT
     Dosage: 5MB TWICE A DAY PO
     Route: 048
     Dates: start: 20090810, end: 20090902

REACTIONS (8)
  - ABDOMINAL PAIN [None]
  - ASTHENIA [None]
  - DYSSTASIA [None]
  - GAIT DISTURBANCE [None]
  - INSOMNIA [None]
  - MUSCLE RIGIDITY [None]
  - PAIN [None]
  - RESTLESSNESS [None]
